FAERS Safety Report 10269714 (Version 1)
Quarter: 2014Q2

REPORT INFORMATION
  Report Type: Spontaneous
  Country: US (occurrence: None)
  Receive Date: 20140626
  Receipt Date: 20140626
  Transmission Date: 20141212
  Serious: Yes (Other)
  Sender: FDA-Public Use
  Company Number: None

PATIENT
  Age: 54 Year
  Sex: Female
  Weight: 56.7 kg

DRUGS (2)
  1. PANTROPAZOLE [Suspect]
     Indication: GASTROOESOPHAGEAL REFLUX DISEASE
     Dosage: 1 TABLET ONCE DAILY TAKEN BY MOUTH
     Route: 048
     Dates: start: 20140228, end: 20140301
  2. PANTROPAZOLE [Suspect]
     Indication: ASTHMA
     Dosage: 1 TABLET ONCE DAILY TAKEN BY MOUTH
     Route: 048
     Dates: start: 20140228, end: 20140301

REACTIONS (7)
  - Dyspnoea [None]
  - Anxiety [None]
  - Muscle tightness [None]
  - Hypertension [None]
  - Heart rate increased [None]
  - Headache [None]
  - Palpitations [None]
